FAERS Safety Report 8064699-3 (Version None)
Quarter: 2012Q1

REPORT INFORMATION
  Report Type: 
  Country: None (occurrence: None)
  Receive Date: 20120123
  Receipt Date: 20120111
  Transmission Date: 20120608
  Serious: Yes (Other)
  Sender: FDA-Public Use
  Company Number: FR-ELI_LILLY_AND_COMPANY-FR201106003687

PATIENT
  Sex: Male
  Weight: 55 kg

DRUGS (15)
  1. RADIATION [Suspect]
     Indication: NON-SMALL CELL LUNG CANCER
     Dosage: UNK UNK, 2GY ON DAY1 FOR 5DAYS PER WEEK
     Dates: start: 20110609
  2. EMEND [Concomitant]
  3. MORPHINE SULFATE [Concomitant]
  4. KYTRIL [Concomitant]
  5. FOLIC ACID [Concomitant]
  6. CISPLATIN [Suspect]
     Indication: NON-SMALL CELL LUNG CANCER
     Dosage: 75 MG/M2, DAY1 EVERY 21DAYS
     Route: 042
     Dates: start: 20110427
  7. VITAMIN B-12 [Concomitant]
  8. DEXAMETHASONE TAB [Concomitant]
  9. PREDNISOLONE [Concomitant]
  10. XANAX [Concomitant]
  11. SYMBICORT [Concomitant]
  12. PEMETREXED [Suspect]
     Indication: NON-SMALL CELL LUNG CANCER
     Dosage: 500 MG/M2, DAY1 EVERY 21DAYS
     Route: 042
     Dates: start: 20110427
  13. ANCOTIL [Concomitant]
  14. NEXIUM [Concomitant]
  15. SPIRIVA [Concomitant]

REACTIONS (1)
  - PULMONARY EMBOLISM [None]
